FAERS Safety Report 17261549 (Version 1)
Quarter: 2020Q1

REPORT INFORMATION
  Report Type: Spontaneous
  Country: IT (occurrence: IT)
  Receive Date: 20200113
  Receipt Date: 20200113
  Transmission Date: 20200409
  Serious: Yes (Hospitalization)
  Sender: FDA-Public Use
  Company Number: IT-TEVA-2020-IT-1165214

PATIENT
  Age: 62 Year
  Sex: Female

DRUGS (8)
  1. OMEPRAZOLE. [Concomitant]
     Active Substance: OMEPRAZOLE
  2. ALLOPURINOL. [Concomitant]
     Active Substance: ALLOPURINOL
  3. SIRDALUD [Concomitant]
     Active Substance: TIZANIDINE
  4. METHOTREXATE. [Suspect]
     Active Substance: METHOTREXATE
     Indication: RHEUMATOID ARTHRITIS
     Dosage: 15 MG 1 WEEKS
     Route: 030
     Dates: start: 20000101, end: 20190930
  5. DIBASE [Concomitant]
     Active Substance: CHOLECALCIFEROL
  6. METFORMIN [Concomitant]
     Active Substance: METFORMIN HYDROCHLORIDE
  7. ZANEDIP [Concomitant]
     Active Substance: LERCANIDIPINE HYDROCHLORIDE
  8. FOLINA [Concomitant]

REACTIONS (1)
  - Biliary sepsis [Recovering/Resolving]

NARRATIVE: CASE EVENT DATE: 20190930
